FAERS Safety Report 11776200 (Version 1)
Quarter: 2015Q4

REPORT INFORMATION
  Report Type: Spontaneous
  Country: US (occurrence: US)
  Receive Date: 20151125
  Receipt Date: 20151125
  Transmission Date: 20160304
  Serious: Yes (Hospitalization)
  Sender: FDA-Public Use
  Company Number: US-ROCHE-1663005

PATIENT
  Age: 47 Year
  Sex: Male
  Weight: 136.08 kg

DRUGS (10)
  1. PREDNISONE. [Suspect]
     Active Substance: PREDNISONE
     Route: 065
  2. VALSARTAN. [Concomitant]
     Active Substance: VALSARTAN
  3. PREDNISONE. [Suspect]
     Active Substance: PREDNISONE
     Indication: PRODUCT USED FOR UNKNOWN INDICATION
     Route: 065
  4. SOLU-MEDROL [Suspect]
     Active Substance: METHYLPREDNISOLONE SODIUM SUCCINATE
     Indication: PRODUCT USED FOR UNKNOWN INDICATION
     Dosage: BAG ONCE A DAY FOR THREE DAYS
     Route: 065
  5. INSULIN [Concomitant]
     Active Substance: INSULIN NOS
  6. LYRICA [Suspect]
     Active Substance: PREGABALIN
     Indication: NEURALGIA
     Dosage: ONE IN THE MORNING AND TWELVE HOURS LATER TAKE TWO AT?NIGHT BY MOUTH
     Route: 065
  7. COREG [Concomitant]
     Active Substance: CARVEDILOL
  8. COUMADIN [Concomitant]
     Active Substance: WARFARIN SODIUM
  9. CELLCEPT [Suspect]
     Active Substance: MYCOPHENOLATE MOFETIL\MYCOPHENOLATE MOFETIL HYDROCHLORIDE
     Indication: IMMUNOSUPPRESSION
     Route: 065
  10. PROGRAF [Concomitant]
     Active Substance: TACROLIMUS\TACROLIMUS ANHYDROUS

REACTIONS (5)
  - Transplant rejection [Recovering/Resolving]
  - Arthralgia [Unknown]
  - Red blood cell count decreased [Unknown]
  - Malaise [Unknown]
  - Weight increased [Unknown]

NARRATIVE: CASE EVENT DATE: 20060303
